FAERS Safety Report 6234690-8 (Version None)
Quarter: 2009Q2

REPORT INFORMATION
  Report Type: 
  Country: None (occurrence: None)
  Receive Date: 20090616
  Receipt Date: 20090616
  Transmission Date: 20091009
  Serious: No
  Sender: FDA-Public Use
  Company Number: None

PATIENT
  Age: 36 Year
  Sex: Male
  Weight: 88.4514 kg

DRUGS (1)
  1. REMICADE [Suspect]
     Indication: PSORIATIC ARTHROPATHY
     Dosage: 3MG/KG ONCE IV BOLUS
     Route: 040
     Dates: start: 20090608, end: 20090608

REACTIONS (15)
  - ARTHRALGIA [None]
  - BACK PAIN [None]
  - DYSPHAGIA [None]
  - DYSPNOEA EXERTIONAL [None]
  - FATIGUE [None]
  - HEADACHE [None]
  - HYPERHIDROSIS [None]
  - MYALGIA [None]
  - OEDEMA PERIPHERAL [None]
  - PARAESTHESIA [None]
  - PHARYNGITIS [None]
  - PRURITUS [None]
  - RHINITIS [None]
  - TEMPOROMANDIBULAR JOINT SYNDROME [None]
  - URTICARIA [None]
